FAERS Safety Report 9505847 (Version 1)
Quarter: 2013Q1

REPORT INFORMATION
  Report Type: Spontaneous
  Country: US (occurrence: None)
  Receive Date: 20130225
  Receipt Date: 20130225
  Transmission Date: 20140127
  Serious: No
  Sender: FDA-Public Use
  Company Number: 2012BAX012700

PATIENT
  Sex: 0

DRUGS (1)
  1. METRONIDAZOLE INJECTION USP CODE 2B3400 500/MG/100ML (METRONIDAZOLE) (SOLUTION FOR INFUSION) [Suspect]
     Indication: PRODUCT USED FOR UNKNOWN INDICATION

REACTIONS (2)
  - Granulocytopenia [None]
  - Leukopenia [None]
